FAERS Safety Report 20606397 (Version 4)
Quarter: 2022Q3

REPORT INFORMATION
  Report Type: Report from Study
  Country: US (occurrence: US)
  Receive Date: 20220317
  Receipt Date: 20220921
  Transmission Date: 20221027
  Serious: No
  Sender: FDA-Public Use
  Company Number: US-NOVARTISTESTPH-NVSC2022US061089

PATIENT
  Sex: Female

DRUGS (1)
  1. COSENTYX [Suspect]
     Active Substance: SECUKINUMAB
     Indication: Psoriasis
     Dosage: UNK UNK, QW
     Route: 058

REACTIONS (5)
  - Abdominal distension [Unknown]
  - Injection site rash [Unknown]
  - Injection site pruritus [Unknown]
  - Abdominal discomfort [Unknown]
  - Diarrhoea [Unknown]
